FAERS Safety Report 11520400 (Version 1)
Quarter: 2015Q3

REPORT INFORMATION
  Report Type: Spontaneous
  Country: US (occurrence: US)
  Receive Date: 20150918
  Receipt Date: 20150918
  Transmission Date: 20151125
  Serious: No
  Sender: FDA-Public Use
  Company Number: US-RB-076631-15

PATIENT

DRUGS (2)
  1. MUCINEX MAXIMUM STRENGTH [Suspect]
     Active Substance: GUAIFENESIN
     Indication: PRODUCT USED FOR UNKNOWN INDICATION
     Dosage: 1200MG. ,QD
     Route: 065
     Dates: start: 20150202
  2. MUCINEX MAXIMUM STRENGTH [Suspect]
     Active Substance: GUAIFENESIN
     Dosage: 1200MG. ,FREQUENCY UNK
     Route: 065
     Dates: start: 20150204

REACTIONS (7)
  - Drug ineffective [Not Recovered/Not Resolved]
  - Fatigue [Recovered/Resolved]
  - Cough [Recovered/Resolved]
  - Pain [Recovered/Resolved]
  - Tremor [Recovered/Resolved]
  - Lacrimation increased [Recovered/Resolved]
  - Sneezing [Recovered/Resolved]
